FAERS Safety Report 8608143-3 (Version None)
Quarter: 2012Q3

REPORT INFORMATION
  Report Type: 
  Country: None (occurrence: None)
  Receive Date: 20120809
  Receipt Date: 20120809
  Transmission Date: 20120928
  Serious: Yes (Other)
  Sender: FDA-Public Use
  Company Number: None

PATIENT
  Sex: Female

DRUGS (2)
  1. ENOXAPARIN [Suspect]
     Indication: THROMBOSIS
     Dosage: 60 MG EVERY 12 HOURS SUB Q PAST 3-4 MONTHS
  2. ENOXAPARIN [Suspect]
     Indication: CEREBRAL THROMBOSIS
     Dosage: 60 MG EVERY 12 HOURS SUB Q PAST 3-4 MONTHS

REACTIONS (3)
  - INJECTION SITE PAIN [None]
  - INJECTION SITE HAEMATOMA [None]
  - DEVICE MALFUNCTION [None]
